FAERS Safety Report 9279091 (Version 1)
Quarter: 2013Q2

REPORT INFORMATION
  Report Type: Report from Study
  Country: AR (occurrence: AR)
  Receive Date: 20130508
  Receipt Date: 20130508
  Transmission Date: 20140414
  Serious: Yes (Other)
  Sender: FDA-Public Use
  Company Number: AR-BAYER-2013-055111

PATIENT
  Age: 59 Year
  Sex: Female

DRUGS (3)
  1. BETAFERON [Suspect]
     Indication: MULTIPLE SCLEROSIS
     Dosage: UNK
     Route: 058
  2. TEGRETOL [Concomitant]
     Indication: TRIGEMINAL NEURALGIA
     Dosage: 800 MG, QD
     Route: 048
     Dates: end: 20130131
  3. AMITRIPTYLINE [Concomitant]
     Dosage: 25 MG, QD
     Dates: end: 20130131

REACTIONS (1)
  - Porphyria non-acute [Not Recovered/Not Resolved]
